FAERS Safety Report 13826148 (Version 1)
Quarter: 2017Q3

REPORT INFORMATION
  Report Type: Report from Study
  Country: US (occurrence: US)
  Receive Date: 20170802
  Receipt Date: 20170802
  Transmission Date: 20171127
  Serious: No
  Sender: FDA-Public Use
  Company Number: GXBR2017US002266

PATIENT
  Age: 8 Year
  Sex: Female
  Weight: 27.4 kg

DRUGS (1)
  1. OMNITROP [Suspect]
     Active Substance: SOMATROPIN
     Indication: TURNER^S SYNDROME
     Dosage: 1.4 MG, QW
     Route: 058
     Dates: start: 20150910

REACTIONS (5)
  - Liver function test increased [Unknown]
  - Self esteem decreased [Unknown]
  - Asthenopia [Unknown]
  - Anxiety [Unknown]
  - Amblyopia [Unknown]

NARRATIVE: CASE EVENT DATE: 20161003
